FAERS Safety Report 25502236 (Version 2)
Quarter: 2025Q3

REPORT INFORMATION
  Report Type: Spontaneous
  Country: US (occurrence: US)
  Receive Date: 20250702
  Receipt Date: 20250717
  Transmission Date: 20251020
  Serious: Yes (Hospitalization)
  Sender: TEVA
  Company Number: US-TEVA-VS-3345198

PATIENT
  Age: 21 Year
  Sex: Female

DRUGS (2)
  1. RIVASTIGMINE [Suspect]
     Active Substance: RIVASTIGMINE
     Indication: Anticholinergic syndrome
     Route: 062
  2. DIPHENHYDRAMINE [Suspect]
     Active Substance: DIPHENHYDRAMINE
     Indication: Product used for unknown indication
     Route: 048

REACTIONS (4)
  - Anticholinergic syndrome [Recovered/Resolved]
  - Off label use [Unknown]
  - Overdose [Unknown]
  - Toxicity to various agents [Recovered/Resolved]
